FAERS Safety Report 4507524-7 (Version None)
Quarter: 2004Q4

REPORT INFORMATION
  Report Type: 
  Country: None (occurrence: None)
  Receive Date: 20041118
  Receipt Date: 20041108
  Transmission Date: 20050328
  Serious: Yes (Hospitalization)
  Sender: FDA-Public Use
  Company Number: 2004089110

PATIENT
  Age: 22 Year
  Sex: Female

DRUGS (2)
  1. ZELDOX [Suspect]
     Indication: SCHIZOPHRENIA
     Dosage: 100 MG, ORAL
     Route: 048
     Dates: start: 20040427
  2. BIPERIDEN HYDROCHLORIDE [Concomitant]

REACTIONS (2)
  - AKATHISIA [None]
  - PARKINSONISM [None]
